FAERS Safety Report 22123584 (Version 3)
Quarter: 2023Q2

REPORT INFORMATION
  Report Type: Other
  Country: PK (occurrence: None)
  Receive Date: 20230322
  Receipt Date: 20230410
  Transmission Date: 20230721
  Serious: Yes (Death)
  Sender: FDA-Public Use
  Company Number: PK-ROCHE-3313869

PATIENT
  Age: 79 Year
  Sex: Male

DRUGS (1)
  1. RITUXIMAB [Suspect]
     Active Substance: RITUXIMAB
     Indication: Rheumatoid arthritis
     Dosage: THERAPY START DATE: 16/APR/2022 ?THERAPY END DATE: 30/APR/2022
     Route: 042

REACTIONS (7)
  - Asthenia [Fatal]
  - Platelet count decreased [Unknown]
  - Pyrexia [Unknown]
  - Urinary tract infection [Unknown]
  - Blood glucose decreased [Unknown]
  - Blood creatinine increased [Unknown]
  - Ill-defined disorder [Fatal]
